FAERS Safety Report 6370093-3 (Version None)
Quarter: 2009Q3

REPORT INFORMATION
  Report Type: 
  Country: None (occurrence: None)
  Receive Date: 20090923
  Receipt Date: 20080404
  Transmission Date: 20100115
  Serious: No
  Sender: FDA-Public Use
  Company Number: US-ASTRAZENECA-2006UW21239

PATIENT
  Age: 603 Month
  Sex: Female
  Weight: 112.9 kg

DRUGS (6)
  1. SEROQUEL [Suspect]
     Indication: DEPRESSION
     Route: 048
     Dates: start: 20030101, end: 20060101
  2. SEROQUEL [Suspect]
     Indication: BIPOLAR DISORDER
     Route: 048
     Dates: start: 20030101, end: 20060101
  3. HUMULIN 70/30 [Concomitant]
     Route: 065
  4. AVANDIA [Concomitant]
     Route: 065
  5. ACTOS [Concomitant]
     Route: 065
  6. LYRICA [Concomitant]
     Route: 065

REACTIONS (9)
  - CONSTIPATION [None]
  - DIABETES MELLITUS [None]
  - FATIGUE [None]
  - MENTAL DISORDER [None]
  - OEDEMA PERIPHERAL [None]
  - PARAESTHESIA [None]
  - POLYDIPSIA [None]
  - POLYURIA [None]
  - RASH [None]
